FAERS Safety Report 9815501 (Version 2)
Quarter: 2014Q2

REPORT INFORMATION
  Report Type: Spontaneous
  Country: US (occurrence: US)
  Receive Date: 20140114
  Receipt Date: 20140424
  Transmission Date: 20141212
  Serious: Yes (Other)
  Sender: FDA-Public Use
  Company Number: US-PFIZER INC-2014010574

PATIENT
  Age: 70 Year
  Sex: Male

DRUGS (8)
  1. SUTENT [Suspect]
     Indication: RENAL CANCER
     Dosage: UNK
     Dates: start: 20140113
  2. AMLODIPINE BESYLATE [Concomitant]
     Dosage: UNK
  3. DOXAZOSIN MESILATE [Concomitant]
     Dosage: UNK
  4. SOTALOL HYDROCHLORIDE [Concomitant]
     Dosage: UNK
  5. VITAMIN C [Concomitant]
     Dosage: UNK
  6. SAW PALMETTO [Concomitant]
     Dosage: UNK
  7. SIMVASTATIN [Concomitant]
     Dosage: UNK
  8. IRON [Concomitant]
     Dosage: UNK

REACTIONS (3)
  - Hernia repair [Unknown]
  - Blister [Unknown]
  - Asthenia [Unknown]
